FAERS Safety Report 4589036-8 (Version None)
Quarter: 2005Q1

REPORT INFORMATION
  Report Type: 
  Country: None (occurrence: None)
  Receive Date: 20050125
  Receipt Date: 20041014
  Transmission Date: 20050727
  Serious: No
  Sender: FDA-Public Use
  Company Number: USA041081156

PATIENT
  Age: 63 Year
  Sex: Female

DRUGS (2)
  1. FORTEO [Suspect]
     Indication: OSTEOPOROSIS
     Dates: start: 20040801
  2. EVISTA [Suspect]
     Indication: OSTEOPOROSIS
     Dates: start: 20040801

REACTIONS (5)
  - BLOOD POTASSIUM INCREASED [None]
  - DYSPNOEA [None]
  - HAEMOGLOBIN INCREASED [None]
  - PALPITATIONS [None]
  - TREMOR [None]
